FAERS Safety Report 6286654-6 (Version None)
Quarter: 2009Q3

REPORT INFORMATION
  Report Type: 
  Country: None (occurrence: None)
  Receive Date: 20090728
  Receipt Date: 20090716
  Transmission Date: 20100115
  Serious: Yes (Other)
  Sender: FDA-Public Use
  Company Number: PHHY2009IE20219

PATIENT
  Sex: Male

DRUGS (15)
  1. STALEVO 100 [Suspect]
     Indication: PARKINSON'S DISEASE
     Dosage: 1200 MG, DAILY
     Route: 048
     Dates: start: 20080911
  2. STALEVO 100 [Suspect]
     Dosage: 150 MG, 5QD
     Route: 048
  3. STALEVO 100 [Suspect]
     Dosage: 200 MG, 6QD
     Route: 048
  4. STALEVO 100 [Suspect]
     Dosage: 200 MG, DAILY
  5. MIRAPEX [Suspect]
     Indication: PARKINSON'S DISEASE
     Dosage: 2.1 MG, UNK
     Route: 048
     Dates: start: 20030101, end: 20090501
  6. SINEMET [Suspect]
     Indication: PARKINSON'S DISEASE
     Dosage: 250 MG DAILY
     Dates: start: 20080807
  7. SINEMET [Concomitant]
     Dosage: 200 MG, UNK
  8. RIVOTRIL [Concomitant]
     Dosage: 0.5 MG, UNK
     Dates: start: 20080501
  9. COZAAR [Concomitant]
     Dosage: 100 MG, UNK
  10. APOMORPHINE [Concomitant]
  11. LOW CENTYL K [Concomitant]
     Dosage: 1.25 MG, UNK
  12. ATENOLOL [Concomitant]
     Dosage: 50 MG, UNK
  13. CRESTOR [Concomitant]
     Dosage: 20 MG, UNK
  14. SEROXAT [Concomitant]
     Dosage: 10 MG, UNK
     Dates: start: 20090219
  15. SEROQUEL [Concomitant]
     Dosage: 25 MG, UNK
     Dates: start: 20090219

REACTIONS (6)
  - ABNORMAL BEHAVIOUR [None]
  - HYPERSEXUALITY [None]
  - LIBIDO INCREASED [None]
  - PATHOLOGICAL GAMBLING [None]
  - PERSONALITY DISORDER [None]
  - TREATMENT NONCOMPLIANCE [None]
